FAERS Safety Report 9026879 (Version 3)
Quarter: 2013Q1

REPORT INFORMATION
  Report Type: Spontaneous
  Country: BR (occurrence: BR)
  Receive Date: 20130123
  Receipt Date: 20130308
  Transmission Date: 20140127
  Serious: Yes (Death, Other)
  Sender: FDA-Public Use
  Company Number: BR-SANOFI-AVENTIS-2013SA004862

PATIENT
  Sex: 0

DRUGS (1)
  1. CLEXANE [Suspect]
     Indication: HYPERCOAGULATION
     Route: 064
     Dates: start: 2012, end: 2012

REACTIONS (3)
  - Death neonatal [Fatal]
  - Exposure during pregnancy [Unknown]
  - Premature baby [Unknown]
